FAERS Safety Report 19507084 (Version 1)
Quarter: 2021Q3

REPORT INFORMATION
  Report Type: Report from Study
  Country: US (occurrence: US)
  Receive Date: 20210708
  Receipt Date: 20210708
  Transmission Date: 20211014
  Serious: Yes (Other)
  Sender: FDA-Public Use
  Company Number: US-BAYER-2021-169356

PATIENT

DRUGS (2)
  1. A AND D ORIGINAL [Suspect]
     Active Substance: LANOLIN\PETROLATUM
     Indication: THERAPEUTIC SKIN CARE TOPICAL
     Route: 061
  2. A AND D ORIGINAL [Suspect]
     Active Substance: LANOLIN\PETROLATUM
     Indication: SKIN FISSURES

REACTIONS (1)
  - Drug ineffective [Unknown]
